FAERS Safety Report 7112582-X (Version None)
Quarter: 2010Q4

REPORT INFORMATION
  Report Type: 
  Country: None (occurrence: None)
  Receive Date: 20101119
  Receipt Date: 20100430
  Transmission Date: 20110411
  Serious: No
  Sender: FDA-Public Use
  Company Number: US-TEVA-233610USA

PATIENT
  Sex: Female
  Weight: 76.272 kg

DRUGS (3)
  1. ALBUTEROL SULFATE AUTOHALER [Suspect]
     Indication: ASTHMA
     Route: 055
     Dates: start: 20100101
  2. GABAPENTIN [Concomitant]
  3. MULTI-VITAMIN [Concomitant]

REACTIONS (6)
  - BLOOD PRESSURE INCREASED [None]
  - COUGH [None]
  - DRUG INEFFECTIVE [None]
  - FLUSHING [None]
  - TACHYCARDIA [None]
  - TRIGEMINAL NEURALGIA [None]
